FAERS Safety Report 6886810-X (Version None)
Quarter: 2010Q3

REPORT INFORMATION
  Report Type: 
  Country: None (occurrence: None)
  Receive Date: 20100730
  Receipt Date: 20100724
  Transmission Date: 20110219
  Serious: Yes (Other)
  Sender: FDA-Public Use
  Company Number: CN-PFIZER INC-2010093152

PATIENT

DRUGS (3)
  1. SOLU-MEDROL [Suspect]
     Dosage: UNK
  2. ASPIRIN [Interacting]
     Dosage: UNK
  3. HEPARIN [Interacting]
     Dosage: UNK

REACTIONS (3)
  - BLOOD AMYLASE INCREASED [None]
  - DRUG INTERACTION [None]
  - HEPATIC FUNCTION ABNORMAL [None]
